FAERS Safety Report 7952157-3 (Version None)
Quarter: 2011Q4

REPORT INFORMATION
  Report Type: 
  Country: None (occurrence: None)
  Receive Date: 20111201
  Receipt Date: 20111128
  Transmission Date: 20120403
  Serious: Yes (Death, Hospitalization)
  Sender: FDA-Public Use
  Company Number: PHHY2011US51819

PATIENT
  Sex: Male

DRUGS (9)
  1. GLEEVEC [Suspect]
     Indication: SPINDLE CELL SARCOMA
     Dosage: 400 MG, DAILY
     Route: 048
     Dates: start: 20110520
  2. GLEEVEC [Suspect]
     Dosage: 100 MG, DAILY
  3. SENOKOT                                 /UNK/ [Concomitant]
  4. OMEPRAZOLE [Concomitant]
     Dosage: 20 MG, DAILYU
  5. PREGABALIN [Concomitant]
     Dosage: U
  6. HYDROMORPHONE HCL [Concomitant]
     Dosage: 0.6 MG, PER HOUR CONTINUOUS INFUSION WITH 0.1 MG Q10 MINUTES PCA
  7. LEVETIRACETAM [Concomitant]
     Dosage: 500 MG, DAILY
  8. DEXAMETHASONE [Concomitant]
     Dosage: 1 MG, TID
  9. MIRALAX [Concomitant]

REACTIONS (9)
  - PAIN IN EXTREMITY [None]
  - VOMITING [None]
  - MUSCULOSKELETAL DISCOMFORT [None]
  - NEOPLASM MALIGNANT [None]
  - PYREXIA [None]
  - DIZZINESS [None]
  - NEOPLASM PROGRESSION [None]
  - CONSTIPATION [None]
  - DEATH [None]
